FAERS Safety Report 6605217-3 (Version None)
Quarter: 2010Q1

REPORT INFORMATION
  Report Type: 
  Country: None (occurrence: None)
  Receive Date: 20100226
  Receipt Date: 20100216
  Transmission Date: 20100710
  Serious: Yes (Death, Other)
  Sender: FDA-Public Use
  Company Number: AU-PFIZER INC-2009309229

PATIENT
  Sex: Male

DRUGS (1)
  1. PHENYTOIN [Suspect]
     Dosage: 100 MG, UNK
     Route: 042

REACTIONS (2)
  - DEATH [None]
  - INCORRECT ROUTE OF DRUG ADMINISTRATION [None]
